FAERS Safety Report 4650957-9 (Version None)
Quarter: 2005Q2

REPORT INFORMATION
  Report Type: 
  Country: None (occurrence: None)
  Receive Date: 20050427
  Receipt Date: 20050415
  Transmission Date: 20051028
  Serious: Yes (Hospitalization)
  Sender: FDA-Public Use
  Company Number: 603402

PATIENT
  Age: 35 Year
  Sex: Female
  Weight: 58.9676 kg

DRUGS (1)
  1. FIBRIN SEALANT VAPOR HEATED, 4IU THROMBIN [Suspect]
     Dosage: 3 ML; ONCE; TOPICAL
     Route: 061
     Dates: start: 20050318

REACTIONS (6)
  - GRAFT LOSS [None]
  - SKIN ODOUR ABNORMAL [None]
  - THERMAL BURN [None]
  - WOUND [None]
  - WOUND COMPLICATION [None]
  - WOUND DRAINAGE [None]
